FAERS Safety Report 8506822-X (Version None)
Quarter: 2012Q3

REPORT INFORMATION
  Report Type: 
  Country: None (occurrence: None)
  Receive Date: 20120712
  Receipt Date: 20120704
  Transmission Date: 20120928
  Serious: Yes (Hospitalization)
  Sender: FDA-Public Use
  Company Number: DE-TEVA-347017GER

PATIENT
  Age: 62 Year
  Sex: Female
  Weight: 65 kg

DRUGS (3)
  1. PROPOFOL [Suspect]
     Indication: SEDATION
     Dosage: 170 MILLIGRAM;
     Route: 042
     Dates: start: 20120608, end: 20120608
  2. PREPACOL [Suspect]
     Indication: COLONOSCOPY
     Route: 048
     Dates: start: 20120607, end: 20120607
  3. ENDOFALK [Suspect]
     Indication: COLONOSCOPY
     Dosage: 6 DOSAGE FORMS;
     Route: 048
     Dates: start: 20120607, end: 20120608

REACTIONS (3)
  - HYPONATRAEMIA [None]
  - HYPOKALAEMIA [None]
  - GRAND MAL CONVULSION [None]
